FAERS Safety Report 8129084-4 (Version None)
Quarter: 2012Q1

REPORT INFORMATION
  Report Type: 
  Country: None (occurrence: None)
  Receive Date: 20120210
  Receipt Date: 20110915
  Transmission Date: 20120608
  Serious: No
  Sender: FDA-Public Use
  Company Number: US-BRISTOL-MYERS SQUIBB COMPANY-16063968

PATIENT
  Age: 57 Year
  Sex: Female

DRUGS (1)
  1. ORENCIA [Suspect]
     Indication: RHEUMATOID ARTHRITIS
     Dosage: NEXT INF: SCHEDULED IN ANOTHER WEEK 3 IV VIALS
     Route: 042
     Dates: start: 20110301

REACTIONS (9)
  - PAIN [None]
  - RASH [None]
  - OEDEMA PERIPHERAL [None]
  - GAIT DISTURBANCE [None]
  - MUSCLE SPASMS [None]
  - ABDOMINAL PAIN UPPER [None]
  - PAIN IN EXTREMITY [None]
  - BACK DISORDER [None]
  - CHEST PAIN [None]
